FAERS Safety Report 17310767 (Version 1)
Quarter: 2020Q1

REPORT INFORMATION
  Report Type: Spontaneous
  Country: US (occurrence: US)
  Receive Date: 20200123
  Receipt Date: 20200123
  Transmission Date: 20200409
  Serious: Yes (Hospitalization)
  Sender: FDA-Public Use
  Company Number: US-ROCHE-2224228

PATIENT
  Age: 25 Year
  Sex: Male

DRUGS (14)
  1. RIBAVIRIN. [Suspect]
     Active Substance: RIBAVIRIN
     Indication: HEPATITIS C
     Route: 065
  2. GEMCITABINE. [Suspect]
     Active Substance: GEMCITABINE
     Indication: B-CELL LYMPHOMA
     Route: 065
  3. MELPHALAN. [Suspect]
     Active Substance: MELPHALAN
     Indication: HEPATITIS C
  4. VORINOSTAT [Suspect]
     Active Substance: VORINOSTAT
     Indication: B-CELL LYMPHOMA
     Route: 065
  5. GEMCITABINE. [Suspect]
     Active Substance: GEMCITABINE
     Indication: HEPATITIS C
  6. VORINOSTAT [Suspect]
     Active Substance: VORINOSTAT
     Indication: HEPATITIS C
  7. MELPHALAN. [Suspect]
     Active Substance: MELPHALAN
     Indication: B-CELL LYMPHOMA
     Route: 065
  8. SOFOSBUVIR [Concomitant]
     Active Substance: SOFOSBUVIR
     Route: 048
  9. DACLATASVIR. [Concomitant]
     Active Substance: DACLATASVIR
     Route: 048
  10. RITUXIMAB. [Suspect]
     Active Substance: RITUXIMAB
     Indication: HEPATITIS C
     Route: 065
  11. RITUXIMAB. [Suspect]
     Active Substance: RITUXIMAB
     Indication: B-CELL LYMPHOMA
  12. BUSULFAN. [Suspect]
     Active Substance: BUSULFAN
     Indication: B-CELL LYMPHOMA
     Route: 065
  13. RIBAVIRIN. [Suspect]
     Active Substance: RIBAVIRIN
     Indication: B-CELL LYMPHOMA
  14. BUSULFAN. [Suspect]
     Active Substance: BUSULFAN
     Indication: HEPATITIS C

REACTIONS (2)
  - Hepatitis C [Recovered/Resolved]
  - Anaemia [Unknown]
